FAERS Safety Report 21782922 (Version 1)
Quarter: 2022Q4

REPORT INFORMATION
  Report Type: Report from Study
  Country: ES (occurrence: ES)
  Receive Date: 20221227
  Receipt Date: 20221227
  Transmission Date: 20230113
  Serious: Yes (Hospitalization, Other)
  Sender: FDA-Public Use
  Company Number: ES-JNJFOC-20221209370

PATIENT
  Age: 7 Decade

DRUGS (6)
  1. TECLISTAMAB [Suspect]
     Active Substance: TECLISTAMAB
     Indication: Plasma cell myeloma
     Dosage: DOSE ESCALATION DAY 1: 3540 MICROGRAMS
     Route: 058
     Dates: start: 20220725
  2. TECLISTAMAB [Suspect]
     Active Substance: TECLISTAMAB
     Dosage: DOSE ESCALATION DAY 2: 17700 MICROGRAMS
     Route: 058
     Dates: start: 20220727
  3. TECLISTAMAB [Suspect]
     Active Substance: TECLISTAMAB
     Dosage: DOSE DAY 1: 88500 MICROGRAMS
     Route: 058
     Dates: start: 20220729
  4. TECLISTAMAB [Suspect]
     Active Substance: TECLISTAMAB
     Dosage: DOSE DAY 7: 88500 MICROGRAMS
     Route: 058
     Dates: start: 20220805
  5. TECLISTAMAB [Suspect]
     Active Substance: TECLISTAMAB
     Dosage: DOSE DAY 15: 88500 MICROGRAMS WITHOUT PREMEDICATION
     Route: 058
     Dates: start: 20220812
  6. TECLISTAMAB [Suspect]
     Active Substance: TECLISTAMAB
     Dosage: DOSE WAS 5 DAYS LATE: 88500 MICROGRAMS WITHOUT PREMEDICATION
     Route: 058
     Dates: start: 20220825

REACTIONS (1)
  - Escherichia sepsis [Recovered/Resolved with Sequelae]

NARRATIVE: CASE EVENT DATE: 20220828
